FAERS Safety Report 16443640 (Version 1)
Quarter: 2019Q2

REPORT INFORMATION
  Report Type: Spontaneous
  Country: IT (occurrence: IT)
  Receive Date: 20190618
  Receipt Date: 20190618
  Transmission Date: 20190711
  Serious: Yes (Other)
  Sender: FDA-Public Use
  Company Number: IT-TEVA-2019-IT-1064494

PATIENT
  Age: 15 Year
  Sex: Male

DRUGS (4)
  1. VIMPAT 50 MG FILM-COATED TABLETS [Concomitant]
     Dosage: 250 MILLIGRAM DAILY;
  2. DEPAKIN [Concomitant]
     Active Substance: VALPROATE SODIUM
     Dosage: 1 GRAM DAILY;
  3. RISPERIDONE. [Suspect]
     Active Substance: RISPERIDONE
     Indication: BEHAVIOUR DISORDER
     Dosage: 2 MILLIGRAM DAILY;
     Route: 048
     Dates: start: 20160101, end: 20160914
  4. PROZIN (CHLORPROMAZINE HYDROCHLORIDE) [Suspect]
     Active Substance: CHLORPROMAZINE HYDROCHLORIDE
     Indication: BEHAVIOUR DISORDER
     Dosage: 1 DOSAGE FORMS DAILY;
     Route: 048
     Dates: start: 20160101, end: 20160914

REACTIONS (4)
  - Dystonia [Recovering/Resolving]
  - Extrapyramidal disorder [Recovering/Resolving]
  - Hunger [Recovering/Resolving]
  - Salivary hypersecretion [Recovering/Resolving]

NARRATIVE: CASE EVENT DATE: 20160914
